FAERS Safety Report 23405664 (Version 1)
Quarter: 2024Q1

REPORT INFORMATION
  Report Type: Spontaneous
  Country: US (occurrence: None)
  Receive Date: 20240113
  Receipt Date: 20240113
  Transmission Date: 20240409
  Serious: Yes (Life-Threatening, Disabling)
  Sender: FDA-Public Use
  Company Number: None

PATIENT
  Age: 35 Year
  Sex: Female
  Weight: 67.95 kg

DRUGS (1)
  1. QULIPTA [Suspect]
     Active Substance: ATOGEPANT
     Indication: Migraine
     Dosage: FREQUENCY : AT BEDTIME;?
     Route: 048
     Dates: start: 20231214, end: 20240110

REACTIONS (8)
  - Nausea [None]
  - Vomiting [None]
  - Dizziness [None]
  - Hypophagia [None]
  - Illness [None]
  - Weight decreased [None]
  - Abdominal discomfort [None]
  - Asthenia [None]

NARRATIVE: CASE EVENT DATE: 20240101
